FAERS Safety Report 8568573-5 (Version None)
Quarter: 2012Q3

REPORT INFORMATION
  Report Type: 
  Country: None (occurrence: None)
  Receive Date: 20120803
  Receipt Date: 20120517
  Transmission Date: 20120928
  Serious: No
  Sender: FDA-Public Use
  Company Number: US-ABBOTT-12P-163-0936423-00

PATIENT
  Sex: Male

DRUGS (4)
  1. NIASPAN [Suspect]
     Indication: PRODUCT USED FOR UNKNOWN INDICATION
     Dosage: AT BEDTIME
     Route: 048
  2. ASPIRIN [Suspect]
     Dosage: AT BEDTIME
     Route: 048
  3. ASPIRIN [Suspect]
     Indication: FLUSHING
  4. ASPIRIN [Suspect]

REACTIONS (4)
  - INJURY [None]
  - HAEMORRHAGE [None]
  - FLUSHING [None]
  - PARAESTHESIA [None]
